FAERS Safety Report 18284229 (Version 1)
Quarter: 2020Q3

REPORT INFORMATION
  Report Type: Spontaneous
  Country: US (occurrence: US)
  Receive Date: 20200918
  Receipt Date: 20200918
  Transmission Date: 20201103
  Serious: No
  Sender: FDA-Public Use
  Company Number: US-PFIZER INC-2020359779

PATIENT
  Age: 55 Year
  Sex: Female

DRUGS (1)
  1. IBRANCE [Suspect]
     Active Substance: PALBOCICLIB
     Indication: BREAST CANCER MALE
     Dosage: 100 MG, CYCLIC (D FOR 21D EVERY 28D)
     Dates: start: 20200331

REACTIONS (1)
  - Somnambulism [Unknown]

NARRATIVE: CASE EVENT DATE: 202008
